FAERS Safety Report 6127261-5 (Version None)
Quarter: 2009Q1

REPORT INFORMATION
  Report Type: 
  Country: None (occurrence: None)
  Receive Date: 20090319
  Receipt Date: 20090305
  Transmission Date: 20090719
  Serious: Yes (Hospitalization)
  Sender: FDA-Public Use
  Company Number: 02100-JPN-08-0063

PATIENT
  Age: 57 Year
  Sex: Male

DRUGS (2)
  1. PLAVIX [Suspect]
     Indication: ISCHAEMIC STROKE
     Dosage: 75 MG, DAILY DOSE, ORAL
     Route: 048
     Dates: start: 20071206, end: 20080102
  2. SIMVASTATIN [Concomitant]

REACTIONS (4)
  - ANOREXIA [None]
  - CEREBROVASCULAR ACCIDENT [None]
  - LETHARGY [None]
  - PNEUMONIA ASPIRATION [None]
